FAERS Safety Report 8546904-X (Version None)
Quarter: 2012Q3

REPORT INFORMATION
  Report Type: 
  Country: None (occurrence: None)
  Receive Date: 20120727
  Receipt Date: 20120118
  Transmission Date: 20120928
  Serious: No
  Sender: FDA-Public Use
  Company Number: US-ASTRAZENECA-2012SE03661

PATIENT
  Age: 14449 Day
  Sex: Female
  Weight: 79.8 kg

DRUGS (7)
  1. SEROQUEL [Suspect]
     Indication: ANXIETY
     Route: 048
  2. SEROQUEL [Suspect]
     Indication: POST-TRAUMATIC STRESS DISORDER
     Route: 048
  3. LEXAPRO [Concomitant]
     Indication: DEPRESSION
  4. SOMA [Concomitant]
     Indication: BACK DISORDER
  5. TRAZODONE HCL [Concomitant]
     Indication: SLEEP DISORDER
  6. LEXAPRO [Concomitant]
     Indication: ANXIETY
  7. LEXAPRO [Concomitant]
     Indication: POST-TRAUMATIC STRESS DISORDER

REACTIONS (4)
  - FALL [None]
  - BACK INJURY [None]
  - MUSCULAR WEAKNESS [None]
  - HEMIPARESIS [None]
